FAERS Safety Report 16664045 (Version 2)
Quarter: 2019Q3

REPORT INFORMATION
  Report Type: Spontaneous
  Country: US (occurrence: US)
  Receive Date: 20190802
  Receipt Date: 20190906
  Transmission Date: 20191004
  Serious: Yes (Death, Hospitalization, Other)
  Sender: FDA-Public Use
  Company Number: US-INCYTE CORPORATION-2019IN007590

PATIENT

DRUGS (2)
  1. JAKAFI [Suspect]
     Active Substance: RUXOLITINIB
     Indication: UNDIFFERENTIATED SARCOMA
     Dosage: 20 MILLIGRAM, DAILY
     Route: 048
  2. JAKAFI [Suspect]
     Active Substance: RUXOLITINIB
     Dosage: 20 MILLIGRAM, BID
     Route: 048
     Dates: start: 20190502, end: 20190728

REACTIONS (5)
  - Sarcoma metastatic [Fatal]
  - Off label use [Unknown]
  - Bronchopulmonary aspergillosis [Fatal]
  - Pneumonitis [Fatal]
  - Dysphagia [Unknown]

NARRATIVE: CASE EVENT DATE: 20190722
